FAERS Safety Report 24268550 (Version 1)
Quarter: 2024Q3

REPORT INFORMATION
  Report Type: Spontaneous
  Country: US (occurrence: US)
  Receive Date: 20240830
  Receipt Date: 20240830
  Transmission Date: 20241017
  Serious: Yes (Hospitalization, Other)
  Sender: APOTEX
  Company Number: US-APOTEX-2024AP009755

PATIENT
  Age: 77 Year
  Sex: Male

DRUGS (1)
  1. OLANZAPINE [Suspect]
     Active Substance: OLANZAPINE
     Indication: Major depression
     Dosage: UNK
     Route: 065

REACTIONS (10)
  - Parkinsonism [Recovering/Resolving]
  - Mental status changes [Recovering/Resolving]
  - Dementia [Recovering/Resolving]
  - Dementia with Lewy bodies [Recovering/Resolving]
  - Autonomic nervous system imbalance [Recovering/Resolving]
  - Somatic delusion [Recovering/Resolving]
  - Delusion [Recovering/Resolving]
  - Delirium [Recovering/Resolving]
  - Major depression [Recovering/Resolving]
  - Hallucination, visual [Recovering/Resolving]
